FAERS Safety Report 14362475 (Version 2)
Quarter: 2018Q1

REPORT INFORMATION
  Report Type: Report from Study
  Country: JP (occurrence: JP)
  Receive Date: 20180108
  Receipt Date: 20180330
  Transmission Date: 20180509
  Serious: Yes (Hospitalization)
  Sender: FDA-Public Use
  Company Number: JP-ROCHE-1883033

PATIENT
  Age: 6 Year
  Sex: Female
  Weight: 29.4 kg

DRUGS (38)
  1. BAKTAR [Concomitant]
     Active Substance: SULFAMETHOXAZOLE\TRIMETHOPRIM
     Dosage: FRACTIONATION DOSE UNCERTAIN FREQUENCY AND DOSE INTERVAL UNCERTAINTY
     Route: 048
     Dates: start: 20170804
  2. ONEALFA [Concomitant]
     Active Substance: ALFACALCIDOL
     Indication: PROPHYLAXIS
     Route: 048
     Dates: start: 20150506, end: 20151215
  3. KEFRAL [Concomitant]
     Active Substance: CEFACLOR
     Indication: INFECTION PROPHYLAXIS
     Dosage: DOSE INTERVAL UNCERTAINTY
     Route: 048
     Dates: start: 20170511, end: 20170523
  4. PREDONINE [Suspect]
     Active Substance: PREDNISOLONE
     Dosage: IT IS A MAXIMAL DOSE FOR THE PERIOD: MINIMUM AMOUNT DURING 15MG/DAY: 5MG/DAY.
     Route: 048
     Dates: start: 2016, end: 20160822
  5. NEORAL [Suspect]
     Active Substance: CYCLOSPORINE
     Indication: NEPHROTIC SYNDROME
     Dosage: FRACTIONATION DOSE UNCERTAIN FREQUENCY AND DOSE INTERVAL UNCERTAINTY
     Route: 048
     Dates: start: 20121010, end: 20150216
  6. NEORAL [Suspect]
     Active Substance: CYCLOSPORINE
     Dosage: DOSAGE DURING A DAY: 70-120MG?FRACTIONATION DOSE UNCERTAIN FREQUENCY AND DOSE INTERVAL UNCERTAINTY
     Route: 048
     Dates: start: 20170504, end: 20170512
  7. PERIACTIN [Concomitant]
     Active Substance: CYPROHEPTADINE HYDROCHLORIDE
     Route: 048
     Dates: start: 20150731, end: 20150731
  8. ENDOXAN [Concomitant]
     Active Substance: CYCLOPHOSPHAMIDE
     Indication: NEPHROTIC SYNDROME
     Dosage: FRACTIONATION DOSE UNCERTAIN FREQUENCY AND DOSE INTERVAL UNCERTAINTY
     Route: 065
     Dates: start: 20170712, end: 20170731
  9. DORMICUM (INJ) [Concomitant]
     Active Substance: MIDAZOLAM HYDROCHLORIDE
     Indication: SEIZURE
     Route: 041
     Dates: start: 20170710, end: 20170713
  10. MYCOPHENOLATE MOFETIL. [Suspect]
     Active Substance: MYCOPHENOLATE MOFETIL
     Indication: NEPHROTIC SYNDROME
     Dosage: FRACTIONATION DOSE UNCERTAIN FREQUENCY AND DOSE INTERVAL UNCERTAINTY
     Route: 048
     Dates: start: 20160314
  11. PREDONINE [Suspect]
     Active Substance: PREDNISOLONE
     Route: 048
     Dates: start: 20150731, end: 20150731
  12. PREDONINE [Suspect]
     Active Substance: PREDNISOLONE
     Dosage: IT IS A MAXIMAL DOSE FOR THE PERIOD: MINIMUM AMOUNT DURING 45MG/DAY: A FRACTIONATION DOSE UNCERTAIN
     Route: 048
     Dates: start: 20170111, end: 20170219
  13. PREDONINE [Suspect]
     Active Substance: PREDNISOLONE
     Dosage: IT IS A MAXIMAL DOSE FOR THE PERIOD: MINIMUM AMOUNT DURING 60MG/DAY: A FRACTIONATION DOSE UNCERTAIN
     Route: 048
     Dates: start: 20170320
  14. CALONAL [Concomitant]
     Active Substance: ACETAMINOPHEN
     Route: 048
     Dates: start: 20150731, end: 20150731
  15. CALONAL [Concomitant]
     Active Substance: ACETAMINOPHEN
     Route: 048
     Dates: start: 20160609, end: 20160609
  16. ONEALFA [Concomitant]
     Active Substance: ALFACALCIDOL
     Dosage: FRACTIONATION DOSE UNCERTAIN FREQUENCY AND DOSE INTERVAL UNCERTAINTY
     Route: 048
     Dates: start: 20160513
  17. SEPAMIT [Concomitant]
     Active Substance: NIFEDIPINE
     Indication: HYPERTENSION
     Dosage: DOSAGE DURING A DAY: 6-60MG,FRACTIONATION DOSE UNCERTAIN FREQUENCY AND DOSE INTERVAL UNCERTAINTY
     Route: 048
     Dates: start: 20170309, end: 20170507
  18. PREDONINE [Suspect]
     Active Substance: PREDNISOLONE
     Dosage: IT IS A MAXIMAL DOSE FOR THE PERIOD: MINIMUM AMOUNT DURING 45MG/DAY: 5MG/DAY.
     Route: 048
     Dates: start: 20160513, end: 2016
  19. NEORAL [Suspect]
     Active Substance: CYCLOSPORINE
     Dosage: DOSAGE DURING A DAY: 70-120MG?FRACTIONATION DOSE UNCERTAIN FREQUENCY AND DOSE INTERVAL UNCERTAINTY
     Route: 048
     Dates: start: 20170513, end: 20170710
  20. RITUXIMAB. [Suspect]
     Active Substance: RITUXIMAB
     Indication: NEPHROTIC SYNDROME
     Route: 041
     Dates: start: 20160609, end: 20160609
  21. PREDONINE [Suspect]
     Active Substance: PREDNISOLONE
     Indication: NEPHROTIC SYNDROME
     Dosage: IT IS A MAXIMAL DOSE FOR THE PERIOD: MINIMUM AMOUNT DURING 45MG/DAY: 5MG/DAY.
     Route: 048
     Dates: start: 20150506, end: 20151215
  22. BAKTAR [Concomitant]
     Active Substance: SULFAMETHOXAZOLE\TRIMETHOPRIM
     Indication: INFECTION PROPHYLAXIS
     Route: 048
     Dates: start: 20150803, end: 20160214
  23. ITRACONAZOLE. [Concomitant]
     Active Substance: ITRACONAZOLE
     Indication: INFECTION PROPHYLAXIS
     Dosage: FRACTIONATION DOSE UNCERTAIN FREQUENCY AND DOSE INTERVAL UNCERTAINTY
     Route: 048
     Dates: start: 20170804
  24. RITUXIMAB. [Suspect]
     Active Substance: RITUXIMAB
     Indication: NEPHROTIC SYNDROME
     Route: 041
     Dates: start: 20150731, end: 20150731
  25. PREDONINE [Suspect]
     Active Substance: PREDNISOLONE
     Route: 048
     Dates: start: 20160609, end: 20160609
  26. POLARAMINE [Concomitant]
     Active Substance: DEXCHLORPHENIRAMINE MALEATE
     Route: 048
     Dates: start: 20160609, end: 20160609
  27. BLOPRESS [Concomitant]
     Active Substance: CANDESARTAN CILEXETIL
     Indication: HYPERTENSION
     Dosage: DOSAGE DURING A DAY: 1-4MG?FRACTIONATION DOSE UNCERTAIN FREQUENCY AND DOSE INTERVAL UNCERTAINTY
     Route: 048
     Dates: start: 20170718
  28. CERCINE [Concomitant]
     Active Substance: DIAZEPAM
     Indication: SEIZURE
     Dosage: FRACTIONATION DOSE UNCERTAIN FREQUENCY AND DOSE INTERVAL UNCERTAINTY
     Route: 042
     Dates: start: 20170710, end: 20170710
  29. MYCOPHENOLATE MOFETIL. [Suspect]
     Active Substance: MYCOPHENOLATE MOFETIL
     Indication: NEPHROTIC SYNDROME
     Route: 048
     Dates: start: 20121016
  30. PERSANTIN [Concomitant]
     Active Substance: DIPYRIDAMOLE
     Indication: PROTEIN TOTAL
     Route: 048
     Dates: start: 20151130
  31. CALBLOCK [Concomitant]
     Active Substance: AZELNIDIPINE
     Indication: HYPERTENSION
     Dosage: DOSAGE DURING A DAY: 4-16MG?FRACTIONATION DOSE UNCERTAIN FREQUENCY AND DOSE INTERVAL UNCERTAINTY
     Route: 048
     Dates: start: 20170508, end: 20170719
  32. KEFRAL [Concomitant]
     Active Substance: CEFACLOR
     Dosage: DOSE INTERVAL UNCERTAINTY
     Route: 048
     Dates: start: 20170524, end: 20170803
  33. AMLODIPINE [Concomitant]
     Active Substance: AMLODIPINE BESYLATE
     Indication: HYPERTENSION
     Dosage: FRACTIONATION DOSE UNCERTAIN FREQUENCY AND DOSE INTERVAL UNCERTAINTY
     Route: 048
     Dates: start: 20170720
  34. NIFEDIPINE. [Concomitant]
     Active Substance: NIFEDIPINE
     Indication: HYPERTENSION
     Dosage: AMOUNT OF 1 ONCE ADMINISTRATION: 0.06-0.08 MG/KG
     Route: 041
     Dates: start: 20170710, end: 20170718
  35. PREDONINE [Suspect]
     Active Substance: PREDNISOLONE
     Dosage: IT IS A MAXIMAL DOSE FOR THE PERIOD: MINIMUM AMOUNT DURING 60MG/DAY: A FRACTIONATION DOSE UNCERTAIN
     Route: 048
     Dates: start: 20170220, end: 20170319
  36. BAKTAR [Concomitant]
     Active Substance: SULFAMETHOXAZOLE\TRIMETHOPRIM
     Indication: INFECTION PROPHYLAXIS
     Route: 048
     Dates: start: 20160610, end: 20161226
  37. GASTER [Concomitant]
     Active Substance: FAMOTIDINE
     Indication: PROPHYLAXIS
     Route: 048
     Dates: start: 20150506, end: 20151215
  38. GASTER [Concomitant]
     Active Substance: FAMOTIDINE
     Dosage: FRACTIONATION DOSE UNCERTAIN FREQUENCY AND DOSE INTERVAL UNCERTAINTY
     Route: 048
     Dates: start: 20160513

REACTIONS (13)
  - Pyrexia [Recovering/Resolving]
  - Off label use [Unknown]
  - Pyuria [Recovering/Resolving]
  - Abdominal pain [Recovering/Resolving]
  - Inflammation [Recovered/Resolved]
  - Gastroenteritis [Recovering/Resolving]
  - Cough [Recovering/Resolving]
  - Rhinorrhoea [Recovering/Resolving]
  - Otitis media [Recovering/Resolving]
  - Bronchitis [Recovered/Resolved]
  - Vomiting [Recovering/Resolving]
  - Cystitis [Recovering/Resolving]
  - Faeces soft [Recovering/Resolving]

NARRATIVE: CASE EVENT DATE: 20160215
